FAERS Safety Report 4740978-X (Version None)
Quarter: 2005Q3

REPORT INFORMATION
  Report Type: 
  Country: None (occurrence: None)
  Receive Date: 20050729
  Receipt Date: 20050218
  Transmission Date: 20060218
  Serious: Yes (Other)
  Sender: FDA-Public Use
  Company Number: 2005S1000695

PATIENT
  Age: 70 Year
  Sex: Female
  Weight: 74.8435 kg

DRUGS (9)
  1. APOKYN [Suspect]
     Indication: PARKINSON'S DISEASE
     Dosage: 2 MG;BID;SC ; 2 MG;TID;SC
     Dates: start: 20050209
  2. APOKYN [Suspect]
     Indication: PARKINSON'S DISEASE
     Dosage: 2 MG;BID;SC ; 2 MG;TID;SC
     Dates: start: 20050209
  3. CARBIDOPA AND LEVODOPA [Concomitant]
  4. PRAMIPEXOLE [Concomitant]
  5. DIHYDROCHLORIDE [Concomitant]
  6. SELEGILINE HCL [Concomitant]
  7. AMANTADINE [Concomitant]
  8. DIAZEPAM [Concomitant]
  9. TRIMETHOBENZAMIDE [Concomitant]

REACTIONS (3)
  - INJECTION SITE PRURITUS [None]
  - NAUSEA [None]
  - SOMNOLENCE [None]
